FAERS Safety Report 17172678 (Version 1)
Quarter: 2019Q4

REPORT INFORMATION
  Report Type: Spontaneous
  Country: GB (occurrence: GB)
  Receive Date: 20191218
  Receipt Date: 20191218
  Transmission Date: 20200122
  Serious: Yes (Other)
  Sender: FDA-Public Use
  Company Number: GB-ELI_LILLY_AND_COMPANY-GB201912003992

PATIENT
  Age: 9 Year
  Sex: Female
  Weight: 24 kg

DRUGS (6)
  1. SOMATROPIN. [Suspect]
     Active Substance: SOMATROPIN
     Indication: GROWTH RETARDATION
     Dosage: 0.8 MG, UNKNOWN
     Route: 058
     Dates: start: 20180418
  2. AZITHROMYCIN ANHYDROUS. [Concomitant]
     Active Substance: AZITHROMYCIN ANHYDROUS
  3. LACTULOSE. [Concomitant]
     Active Substance: LACTULOSE
  4. SALMETEROL [Concomitant]
     Active Substance: SALMETEROL
  5. SALBUTAMOL [Concomitant]
     Active Substance: ALBUTEROL
  6. CASSIA SENNA [Concomitant]
     Active Substance: HERBALS\SENNOSIDES

REACTIONS (4)
  - Condition aggravated [Not Recovered/Not Resolved]
  - Stress fracture [Not Recovered/Not Resolved]
  - Granuloma [Not Recovered/Not Resolved]
  - Pain in extremity [Not Recovered/Not Resolved]

NARRATIVE: CASE EVENT DATE: 20180918
